FAERS Safety Report 9464149 (Version 3)
Quarter: 2014Q3

REPORT INFORMATION
  Report Type: Spontaneous
  Country: US (occurrence: US)
  Receive Date: 20130819
  Receipt Date: 20140813
  Transmission Date: 20150326
  Serious: Yes (Life-Threatening, Hospitalization, Other)
  Sender: FDA-Public Use
  Company Number: US-009507513-1308USA007511

PATIENT
  Sex: Female
  Weight: 86.17 kg

DRUGS (4)
  1. NUVARING [Suspect]
     Active Substance: ETHINYL ESTRADIOL\ETONOGESTREL
     Indication: CONTRACEPTION
     Dosage: 0.12-0.015 MG/24 HRS, 1 RING INSERTED FOR 3 WEEKS, THEN TAKEN OUT FOR 1 WEEK
     Route: 067
     Dates: start: 200805, end: 20081103
  2. ZOLOFT [Concomitant]
     Active Substance: SERTRALINE HYDROCHLORIDE
     Indication: DEPRESSION
  3. ZOLOFT [Concomitant]
     Active Substance: SERTRALINE HYDROCHLORIDE
     Indication: ANXIETY DISORDER
     Dosage: 100 MG, QD
     Dates: start: 200109, end: 2010
  4. PRILOSEC [Concomitant]
     Active Substance: OMEPRAZOLE MAGNESIUM
     Indication: GASTROOESOPHAGEAL REFLUX DISEASE
     Dosage: 20 MG, QD
     Route: 048
     Dates: start: 2006, end: 2011

REACTIONS (21)
  - Pneumonia bacterial [Recovering/Resolving]
  - Influenza [Unknown]
  - Hypercoagulation [Unknown]
  - Fatigue [Not Recovered/Not Resolved]
  - Nausea [Unknown]
  - Gastrointestinal tract irritation [Unknown]
  - Spondylolysis [Unknown]
  - Hypoaesthesia [Unknown]
  - Balance disorder [Unknown]
  - Adverse drug reaction [Unknown]
  - Gastrooesophageal reflux disease [Unknown]
  - Vomiting [Unknown]
  - Abdominal pain upper [Unknown]
  - Contusion [Unknown]
  - Spondylolisthesis [Unknown]
  - Pulmonary embolism [Recovering/Resolving]
  - Chest discomfort [Unknown]
  - Paraesthesia [Unknown]
  - Dizziness [Unknown]
  - Headache [Unknown]
  - Nephrolithiasis [Unknown]

NARRATIVE: CASE EVENT DATE: 200805
